FAERS Safety Report 18749474 (Version 1)
Quarter: 2021Q1

REPORT INFORMATION
  Report Type: Spontaneous
  Country: PT (occurrence: PT)
  Receive Date: 20210116
  Receipt Date: 20210116
  Transmission Date: 20210419
  Serious: Yes (Life-Threatening, Hospitalization)
  Sender: FDA-Public Use
  Company Number: NVSC2021PT009086

PATIENT
  Age: 41 Year
  Sex: Female
  Weight: 52 kg

DRUGS (5)
  1. FAKTU [Concomitant]
     Indication: PRODUCT USED FOR UNKNOWN INDICATION
     Dosage: UNK
     Route: 065
  2. YODAFAR [Concomitant]
     Indication: PRODUCT USED FOR UNKNOWN INDICATION
     Dosage: UNK
     Route: 065
  3. FOLIFER [Concomitant]
     Indication: PRODUCT USED FOR UNKNOWN INDICATION
     Dosage: UNK
     Route: 065
  4. VENEX [Concomitant]
     Indication: PRODUCT USED FOR UNKNOWN INDICATION
     Dosage: UNK
     Route: 048
  5. VOLTAREN RAPID [Suspect]
     Active Substance: DICLOFENAC POTASSIUM
     Indication: HAEMORRHOIDS
     Dosage: 150 MG,QD (1 COMP. 8 EM 8 HORAS) COMPRIMIDO REVESTIDO
     Route: 048
     Dates: start: 20201212, end: 20201214

REACTIONS (3)
  - Contraindicated product prescribed [Unknown]
  - Tachycardia foetal [Recovering/Resolving]
  - Precipitate labour [Unknown]

NARRATIVE: CASE EVENT DATE: 20201212
